FAERS Safety Report 14555163 (Version 1)
Quarter: 2018Q1

REPORT INFORMATION
  Report Type: Spontaneous
  Country: US (occurrence: US)
  Receive Date: 20180220
  Receipt Date: 20180220
  Transmission Date: 20180509
  Serious: No
  Sender: FDA-Public Use
  Company Number: US-IPSEN BIOPHARMACEUTICALS, INC.-2017-16369

PATIENT
  Age: 38 Year
  Sex: Female

DRUGS (1)
  1. DYSPORT [Suspect]
     Active Substance: ABOBOTULINUMTOXINA
     Indication: SKIN WRINKLING
     Dosage: 90 UNITS
     Route: 065
     Dates: start: 20171115, end: 20171115

REACTIONS (6)
  - Dyspnoea [Unknown]
  - Fatigue [Unknown]
  - Wrong technique in product usage process [Unknown]
  - Product preparation error [Unknown]
  - Migraine [Unknown]
  - Anxiety [Unknown]

NARRATIVE: CASE EVENT DATE: 20171221
